FAERS Safety Report 18268925 (Version 1)
Quarter: 2020Q3

REPORT INFORMATION
  Report Type: Spontaneous
  Country: US (occurrence: US)
  Receive Date: 20200915
  Receipt Date: 20200915
  Transmission Date: 20201103
  Serious: Yes (Other)
  Sender: FDA-Public Use
  Company Number: US-LEXICON PHARMACEUTICALS, INC-20-1606-00737

PATIENT
  Age: 61 Year
  Sex: Female

DRUGS (2)
  1. XERMELO [Suspect]
     Active Substance: TELOTRISTAT ETHYL
     Indication: CARCINOID SYNDROME
     Dates: start: 20191119
  2. XERMELO [Suspect]
     Active Substance: TELOTRISTAT ETHYL
     Route: 048

REACTIONS (3)
  - Radiotherapy [Unknown]
  - Abdominal pain [Unknown]
  - Constipation [Unknown]
